FAERS Safety Report 8346921-9 (Version None)
Quarter: 2012Q2

REPORT INFORMATION
  Report Type: 
  Country: None (occurrence: None)
  Receive Date: 20120509
  Receipt Date: 20120504
  Transmission Date: 20120825
  Serious: Yes (Hospitalization)
  Sender: FDA-Public Use
  Company Number: PHHY2012DK015804

PATIENT
  Sex: Male

DRUGS (11)
  1. METHOTREXATE [Suspect]
     Indication: RHEUMATOID ARTHRITIS
     Dosage: 2.5 MG, QW
     Route: 048
     Dates: start: 20061017, end: 20101130
  2. SULFASALAZINE [Concomitant]
     Dates: start: 20050101
  3. FOLIMET [Concomitant]
  4. REMICADE [Suspect]
     Indication: RHEUMATOID ARTHRITIS
     Dosage: 400 MG, WEEKLY DOSE (WEEK 0, 2, 6, +6)
     Dates: start: 20061017, end: 20101130
  5. ENALAPRIL MALEATE [Concomitant]
     Dates: start: 20080101
  6. CENTYL [Concomitant]
     Dates: start: 20080101
  7. ALLOPURINOL [Concomitant]
     Dates: start: 20050101
  8. WARFARIN SODIUM [Concomitant]
     Dates: start: 20110301
  9. REMICADE [Suspect]
     Dosage: DOSIS: 400 MG UGE 0,2,6, +6
     Dates: start: 20061017, end: 20101130
  10. UNIKALK [Concomitant]
  11. VITAMIN D [Concomitant]

REACTIONS (1)
  - BLADDER TRANSITIONAL CELL CARCINOMA [None]
